FAERS Safety Report 16559664 (Version 4)
Quarter: 2022Q2

REPORT INFORMATION
  Report Type: Spontaneous
  Country: US (occurrence: US)
  Receive Date: 20190711
  Receipt Date: 20220414
  Transmission Date: 20220720
  Serious: No
  Sender: FDA-Public Use
  Company Number: US-PFIZER INC-2019292509

PATIENT
  Age: 58 Year
  Sex: Female
  Weight: 90.72 kg

DRUGS (12)
  1. LYRICA [Suspect]
     Active Substance: PREGABALIN
     Indication: Neuropathy peripheral
     Dosage: 150 MG, 1X/DAY (BED TIME)
     Route: 048
     Dates: start: 2017
  2. LYRICA [Suspect]
     Active Substance: PREGABALIN
     Indication: Congenital tongue anomaly
     Dosage: 150 MG, 2X/DAY
     Route: 048
     Dates: start: 201910
  3. LYRICA [Suspect]
     Active Substance: PREGABALIN
     Indication: Investigation abnormal
  4. RAMIPRIL [Concomitant]
     Active Substance: RAMIPRIL
     Indication: Blood pressure measurement
     Dosage: 10 MG, 1X/DAY
     Route: 048
     Dates: start: 2000
  5. METOPROLOL TARTRATE [Concomitant]
     Active Substance: METOPROLOL TARTRATE
     Indication: Blood pressure abnormal
     Dosage: 25 MG, 2X/DAY
     Route: 048
     Dates: start: 2000
  6. HYDROCHLOROTHIAZIDE [Concomitant]
     Active Substance: HYDROCHLOROTHIAZIDE
     Indication: Blood pressure abnormal
     Dosage: 25 MG, DAILY[ONCE A DAILY IN THE MORNING]
     Dates: start: 2000
  7. OXYBUTYNIN [Concomitant]
     Active Substance: OXYBUTYNIN
     Indication: Bladder disorder
     Dosage: 5 MG, 2X/DAY
     Route: 048
  8. ASPIRIN [Concomitant]
     Active Substance: ASPIRIN
     Indication: Cardiac disorder
     Dosage: 81 MG, 1X/DAY
     Route: 048
     Dates: start: 2000
  9. ACYCLOVIR [Concomitant]
     Active Substance: ACYCLOVIR
     Indication: Herpes zoster
     Dosage: 200 MG, AS NEEDED
     Dates: start: 2016
  10. VITAMIN C [Concomitant]
     Active Substance: ASCORBIC ACID
     Indication: Herpes zoster
     Dosage: 1000 MG, 1X/DAY
     Route: 048
     Dates: start: 2017
  11. VITAMIN B COMPLEX [Concomitant]
     Active Substance: CYANOCOBALAMIN\DEXPANTHENOL\NIACINAMIDE\PYRIDOXINE HYDROCHLORIDE\RIBOFLAVIN 5^-PHOSPHATE SODIUM\THIA
     Indication: Herpes zoster
     Dosage: UNK UNK, 1X/DAY[2 TABLETS A DAY BY MOUTH]
     Route: 048
     Dates: start: 2017
  12. LYSINE [Concomitant]
     Active Substance: LYSINE
     Indication: Herpes zoster
     Dosage: 1000 MG, DAILY
     Route: 048
     Dates: start: 2017

REACTIONS (1)
  - Tongue discomfort [Not Recovered/Not Resolved]

NARRATIVE: CASE EVENT DATE: 20170101
